FAERS Safety Report 5946346-7 (Version None)
Quarter: 2008Q4

REPORT INFORMATION
  Report Type: 
  Country: None (occurrence: None)
  Receive Date: 20081106
  Receipt Date: 20081106
  Transmission Date: 20090506
  Serious: Yes (Life-Threatening)
  Sender: FDA-Public Use
  Company Number: None

PATIENT
  Age: 84 Year
  Sex: Male

DRUGS (5)
  1. MIDAZOLAM HCL [Suspect]
     Indication: ENDOSCOPY
     Dosage: 2MG IV ONCE
     Route: 042
  2. MIDAZOLAM HCL [Suspect]
     Indication: SEDATION
     Dosage: 2MG IV ONCE
     Route: 042
  3. PROPOFOL [Suspect]
     Indication: ENDOSCOPY
     Dosage: 10MG, IV ONCE
     Route: 042
  4. PROPOFOL [Suspect]
     Indication: SEDATION
     Dosage: 10MG, IV ONCE
     Route: 042
  5. FENTANYL-100 [Suspect]

REACTIONS (9)
  - ACUTE RESPIRATORY FAILURE [None]
  - DEPRESSED LEVEL OF CONSCIOUSNESS [None]
  - HEART RATE DECREASED [None]
  - PNEUMONIA [None]
  - PULMONARY ARTERIAL PRESSURE INCREASED [None]
  - RESPIRATORY ARREST [None]
  - RESPIRATORY DEPRESSION [None]
  - RESPIRATORY DISTRESS [None]
  - SLEEP APNOEA SYNDROME [None]
